FAERS Safety Report 9178999 (Version 2)
Quarter: 2013Q1

REPORT INFORMATION
  Report Type: Spontaneous
  Country: DE (occurrence: DE)
  Receive Date: 20130321
  Receipt Date: 20130329
  Transmission Date: 20140127
  Serious: Yes (Hospitalization, Other)
  Sender: FDA-Public Use
  Company Number: DE-ROCHE-1203669

PATIENT
  Sex: Female
  Weight: 100 kg

DRUGS (21)
  1. MABTHERA [Suspect]
     Indication: CHRONIC LYMPHOCYTIC LEUKAEMIA
     Route: 042
     Dates: start: 20130311
  2. HYDROMORPHONE [Concomitant]
     Route: 048
  3. ALLOPURINOL [Concomitant]
     Route: 048
  4. DELIX 5 [Concomitant]
     Dosage: DELIX 5 PLUS
     Route: 048
  5. DELIX 5 [Concomitant]
     Dosage: DELIX 5 PLUS
     Route: 048
  6. DELIX 5 [Concomitant]
     Dosage: DELIX 5 PLUS
     Route: 048
  7. L-THYROXIN [Concomitant]
     Route: 048
  8. L-THYROXIN [Concomitant]
     Dosage: DELIX 5 PLUS
     Route: 048
  9. L-THYROXIN [Concomitant]
     Dosage: DELIX 5 PLUS
     Route: 048
  10. LYRICA [Concomitant]
     Route: 065
  11. LYRICA [Concomitant]
     Dosage: DELIX 5 PLUS
     Route: 048
  12. LYRICA [Concomitant]
     Dosage: DELIX 5 PLUS
     Route: 048
  13. PANTAZOL [Concomitant]
     Route: 065
  14. PANTAZOL [Concomitant]
     Dosage: DELIX 5 PLUS
     Route: 048
  15. PANTAZOL [Concomitant]
     Dosage: DELIX 5 PLUS
     Route: 048
  16. ACTRAPID INSULIN [Concomitant]
     Route: 065
  17. ACTRAPID INSULIN [Concomitant]
     Dosage: DELIX 5 PLUS
     Route: 048
  18. ACTRAPID INSULIN [Concomitant]
     Dosage: DELIX 5 PLUS
     Route: 048
  19. PROTAPHANE [Concomitant]
     Dosage: PROTAPHANE INSULIN
     Route: 065
  20. PROTAPHANE [Concomitant]
     Dosage: DELIX 5 PLUS
     Route: 048
  21. PROTAPHANE [Concomitant]
     Dosage: DELIX 5 PLUS
     Route: 048

REACTIONS (6)
  - Incontinence [Recovering/Resolving]
  - Vertigo [Recovering/Resolving]
  - Confusional state [Recovering/Resolving]
  - Visual impairment [Recovering/Resolving]
  - Pyrexia [Recovering/Resolving]
  - C-reactive protein increased [Recovering/Resolving]
